FAERS Safety Report 12327763 (Version 2)
Quarter: 2016Q2

REPORT INFORMATION
  Report Type: Report from Study
  Country: TW (occurrence: TW)
  Receive Date: 20160503
  Receipt Date: 20160531
  Transmission Date: 20160815
  Serious: Yes (Hospitalization, Other)
  Sender: FDA-Public Use
  Company Number: TW-JNJFOC-20160500036

PATIENT
  Age: 75 Year
  Sex: Female
  Weight: 69 kg

DRUGS (8)
  1. TERBINAFINE. [Concomitant]
     Active Substance: TERBINAFINE
     Route: 048
     Dates: start: 20160501, end: 20160524
  2. XAMIOL [Concomitant]
     Active Substance: BETAMETHASONE DIPROPIONATE\CALCIPOTRIENE HYDRATE
     Route: 061
     Dates: start: 20160408
  3. STELARA [Suspect]
     Active Substance: USTEKINUMAB
     Indication: PSORIASIS
     Dosage: FIRST AND SECOND DOSE :45MG/Q4W??THE FOLLOWING DOSE:45MG/Q12W
     Route: 058
     Dates: start: 20150519
  4. CEFADROXIL. [Concomitant]
     Active Substance: CEFADROXIL
     Route: 065
     Dates: start: 20160511, end: 20160524
  5. ATORVASTATIN [Concomitant]
     Active Substance: ATORVASTATIN
     Dosage: 10 MG 0.5 A DAY
     Route: 048
     Dates: start: 20140613
  6. AMLODIPINE [Concomitant]
     Active Substance: AMLODIPINE BESYLATE
     Route: 048
     Dates: start: 20140613
  7. NEOMYCIN SULPHATE [Concomitant]
     Route: 061
     Dates: start: 20160429
  8. DOXEPIN [Concomitant]
     Active Substance: DOXEPIN
     Dosage: HALF STRENGTH
     Route: 048
     Dates: start: 20160505, end: 20160524

REACTIONS (1)
  - Cellulitis [Recovered/Resolved]

NARRATIVE: CASE EVENT DATE: 20160427
